FAERS Safety Report 10351153 (Version 1)
Quarter: 2014Q3

REPORT INFORMATION
  Report Type: Spontaneous
  Country: GB (occurrence: GB)
  Receive Date: 20140730
  Receipt Date: 20140730
  Transmission Date: 20150326
  Serious: Yes (Other)
  Sender: FDA-Public Use
  Company Number: GB-ROXANE LABORATORIES, INC.-2014-RO-01146RO

PATIENT
  Age: 42 Year
  Sex: Male

DRUGS (8)
  1. KETAMINE [Concomitant]
     Active Substance: KETAMINE
     Indication: NEURALGIA
     Route: 065
  2. LIDOCAINE. [Concomitant]
     Active Substance: LIDOCAINE
     Indication: NEURALGIA
     Route: 065
  3. GABAPENTIN. [Suspect]
     Active Substance: GABAPENTIN
     Indication: NEURALGIA
     Route: 065
  4. PREGABALIN. [Suspect]
     Active Substance: PREGABALIN
     Indication: NEURALGIA
     Dosage: 600 MG
     Route: 065
  5. METHADONE [Suspect]
     Active Substance: METHADONE HYDROCHLORIDE
     Indication: NEURALGIA
     Dosage: 80 MG
     Route: 065
     Dates: start: 201203, end: 201204
  6. OXYCONTIN [Concomitant]
     Active Substance: OXYCODONE HYDROCHLORIDE
     Indication: NEURALGIA
     Dosage: 320 MG
     Route: 065
  7. MORPHINE [Suspect]
     Active Substance: MORPHINE
     Indication: NEURALGIA
     Route: 065
  8. AMITRIPTYLINE [Suspect]
     Active Substance: AMITRIPTYLINE
     Indication: NEURALGIA
     Route: 065

REACTIONS (4)
  - Oedema peripheral [Recovered/Resolved]
  - Functional gastrointestinal disorder [Unknown]
  - Bladder dysfunction [Unknown]
  - Sexual dysfunction [Unknown]

NARRATIVE: CASE EVENT DATE: 201012
